FAERS Safety Report 9458625 (Version 1)
Quarter: 2013Q3

REPORT INFORMATION
  Report Type: Spontaneous
  Country: DE (occurrence: DE)
  Receive Date: 20130814
  Receipt Date: 20130814
  Transmission Date: 20140515
  Serious: Yes (Hospitalization, Other)
  Sender: FDA-Public Use
  Company Number: DE-BAYER-2013-096920

PATIENT
  Age: 47 Year
  Sex: Male

DRUGS (44)
  1. ULTRAVIST [Suspect]
     Indication: COMPUTERISED TOMOGRAM
  2. ULTRAVIST [Suspect]
     Indication: COMPUTERISED TOMOGRAM
     Dosage: UNK
     Dates: start: 20110530
  3. BEVACIZUMAB [Suspect]
     Indication: GLIOBLASTOMA MULTIFORME
     Dosage: 820 MG, BI WEEKLY
     Route: 042
  4. IRINOTECAN HYDROCHLORIDE [Suspect]
     Indication: GLIOBLASTOMA MULTIFORME
     Dosage: 253.20 MG BI WEKLY
     Route: 042
  5. IRINOTECAN HYDROCHLORIDE [Suspect]
     Indication: GLIOBLASTOMA MULTIFORME
     Dosage: 253.20 MG BI WEKLY
     Route: 042
  6. TEMOZOLOMIDE [Suspect]
     Indication: GLIOBLASTOMA MULTIFORME
     Dosage: 420 MG, D1 - D5 EVERY 28 DAYS
     Dates: start: 20110112
  7. DEXAMETHASONE [Concomitant]
     Dosage: 1 MG
     Route: 065
     Dates: start: 20110228, end: 20110305
  8. DEXAMETHASONE [Concomitant]
     Dosage: 4 MG
     Route: 065
     Dates: start: 20110305, end: 20110520
  9. DEXAMETHASONE [Concomitant]
     Dosage: 6 MG
     Route: 065
     Dates: start: 20110525, end: 20110529
  10. METHYLPREDNISOLONE [Concomitant]
     Dosage: 1000 MG
     Route: 065
     Dates: start: 20110502, end: 20110504
  11. METHYLPREDNISOLONE [Concomitant]
     Dosage: 500 MG
     Route: 065
     Dates: start: 20110505, end: 20110505
  12. METHYLPREDNISOLONE [Concomitant]
     Dosage: 40 MG
     Route: 065
     Dates: start: 20110508, end: 20110626
  13. METHYLPREDNISOLONE [Concomitant]
     Dosage: 20 MG
     Route: 065
     Dates: start: 20110615, end: 20110712
  14. METHYLPREDNISOLONE [Concomitant]
     Dosage: 10 MG
     Route: 065
     Dates: start: 20110712, end: 20110728
  15. METHYLPREDNISOLONE [Concomitant]
     Dosage: 2 MG
     Route: 065
     Dates: start: 20110728, end: 20110810
  16. METHYLPREDNISOLONE [Concomitant]
     Dosage: 1 MG
     Route: 065
     Dates: start: 20110810, end: 20110824
  17. METHYLPREDNISOLONE [Concomitant]
     Dosage: 120 MG
     Route: 065
     Dates: start: 20120127, end: 20120201
  18. METHYLPREDNISOLONE [Concomitant]
     Dosage: 500 MG
     Dates: start: 20110502, end: 20110502
  19. METHYLPREDNISOLONE [Concomitant]
     Dosage: 40
     Dates: start: 20110530, end: 20110530
  20. METHYLPREDNISOLONE [Concomitant]
     Dosage: 120 MG
     Dates: start: 20110530, end: 20110605
  21. METHYLPREDNISOLONE [Concomitant]
     Dosage: 40 MG
     Dates: start: 20110606, end: 20110614
  22. METHYLPREDNISOLONE [Concomitant]
     Dosage: 20 MG
     Dates: start: 20110615, end: 20110620
  23. METHYLPREDNISOLONE [Concomitant]
     Dosage: 16 MG
     Dates: start: 20110621, end: 20110711
  24. METHYLPREDNISOLONE [Concomitant]
     Dosage: 10 MG
     Dates: start: 20110712, end: 20110714
  25. METHYLPREDNISOLONE [Concomitant]
     Dosage: 4 MG
     Dates: start: 20110704, end: 20110727
  26. METHYLPREDNISOLONE [Concomitant]
     Dosage: 2
     Dates: start: 20110728, end: 20110809
  27. METHYLPREDNISOLONE [Concomitant]
     Dosage: 1 MG
     Dates: start: 20110810, end: 20110824
  28. METHYLPREDNISOLONE [Concomitant]
     Dosage: 20 MG
     Dates: start: 20111214, end: 20111219
  29. METHYLPREDNISOLONE [Concomitant]
     Dosage: 1000 MG
     Dates: start: 20120120, end: 20120125
  30. KEPPRA [Concomitant]
     Dosage: 2000 MG
     Route: 065
     Dates: start: 20110110, end: 20110118
  31. KEPPRA [Concomitant]
     Dosage: 4000 MG (2 IN 1 D)
     Route: 065
     Dates: start: 20110118, end: 20110126
  32. KEPPRA [Concomitant]
     Dosage: 3000 MG
     Route: 065
     Dates: start: 20110126, end: 20110413
  33. KEPPRA [Concomitant]
     Dosage: 4000 MG
     Route: 065
     Dates: start: 20110413
  34. IBUPROFEN [Concomitant]
     Dosage: 400 MG
     Route: 065
     Dates: start: 20110110, end: 20110126
  35. PANTOZOL [Concomitant]
     Dosage: 40 MG
     Route: 065
     Dates: start: 20110110
  36. ONDANSETRON [Concomitant]
     Dosage: 4 MG
     Route: 065
     Dates: start: 20110112, end: 20110222
  37. COTRIM [Concomitant]
     Dosage: 960 MG
     Route: 065
     Dates: start: 20110112, end: 20110314
  38. KANAMYCIN [Concomitant]
     Dosage: 1-1-1-1
     Route: 065
     Dates: start: 20110314, end: 20110418
  39. THIAMAZOLE [Concomitant]
     Dosage: 80 MG
     Route: 065
     Dates: start: 20110916
  40. PROPANOLOL [Concomitant]
     Dosage: 20 MG
     Route: 065
     Dates: start: 20110918
  41. RAMIPRIL [Concomitant]
     Dosage: 5 MG
     Route: 065
     Dates: start: 20110916
  42. GLYCEROSTERIL [Concomitant]
     Dosage: 375 ML
     Dates: start: 20120123, end: 20120123
  43. GLYCEROSTERIL [Concomitant]
     Dosage: 625 ML
     Dates: start: 20120124, end: 20120124
  44. GLYCEROSTERIL [Concomitant]
     Dosage: 500 ML
     Dates: start: 20120125, end: 20120126

REACTIONS (3)
  - Hyperthyroidism [Recovered/Resolved]
  - General physical health deterioration [None]
  - Nausea [Recovered/Resolved]
